FAERS Safety Report 5196346-2 (Version None)
Quarter: 2006Q4

REPORT INFORMATION
  Report Type: 
  Country: None (occurrence: None)
  Receive Date: 20061222
  Receipt Date: 20061212
  Transmission Date: 20070319
  Serious: Yes (Hospitalization, Other)
  Sender: FDA-Public Use
  Company Number: 2006134110

PATIENT
  Age: 70 Year
  Sex: Female

DRUGS (6)
  1. REVATIO [Suspect]
     Indication: PULMONARY HYPERTENSION
     Dosage: 60 MG (20 MG, 3 IN 1 D), ORAL
     Route: 048
     Dates: start: 20060501
  2. VIAGRA [Concomitant]
  3. ALL OTHER THERAPEUTIC PRODUCTS [Concomitant]
  4. MOLSIHEXAL (MOLSIDOMINE) [Concomitant]
  5. MARCUMAR [Concomitant]
  6. OXYGEN [Concomitant]

REACTIONS (11)
  - CEREBRAL ATROPHY [None]
  - CEREBROVASCULAR DISORDER [None]
  - HEADACHE [None]
  - MACULAR DEGENERATION [None]
  - MACULAR OEDEMA [None]
  - MACULOPATHY [None]
  - NEURODEGENERATIVE DISORDER [None]
  - OPTIC NEUROPATHY [None]
  - RETINAL DEGENERATION [None]
  - VISION BLURRED [None]
  - XANTHOPSIA [None]
